FAERS Safety Report 13240953 (Version 1)
Quarter: 2017Q1

REPORT INFORMATION
  Report Type: Spontaneous
  Country: US (occurrence: US)
  Receive Date: 20170216
  Receipt Date: 20170216
  Transmission Date: 20170428
  Serious: No
  Sender: FDA-Public Use
  Company Number: US-RELYPSA-RLY2016004351

PATIENT
  Sex: Male

DRUGS (17)
  1. DOXAZOSIN MESYLATE. [Concomitant]
     Active Substance: DOXAZOSIN MESYLATE
  2. ATORVASTATIN CALCIUM. [Concomitant]
     Active Substance: ATORVASTATIN CALCIUM
  3. LANTUS [Concomitant]
     Active Substance: INSULIN GLARGINE
  4. CATAPRES                           /00171101/ [Concomitant]
     Active Substance: CLONIDINE
  5. ROPINIROLE HCL [Concomitant]
     Active Substance: ROPINIROLE HYDROCHLORIDE
  6. GLYBURIDE MICRO [Concomitant]
  7. COLCRYS [Concomitant]
     Active Substance: COLCHICINE
  8. ALLOPURINOL. [Concomitant]
     Active Substance: ALLOPURINOL
  9. MINOXIDIL. [Concomitant]
     Active Substance: MINOXIDIL
  10. HUMALOG [Concomitant]
     Active Substance: INSULIN LISPRO
  11. AMLODIPINE BESYLATE. [Concomitant]
     Active Substance: AMLODIPINE BESYLATE
  12. VELTASSA [Suspect]
     Active Substance: PATIROMER
     Indication: HYPERKALAEMIA
     Dosage: 8.4 G, QD
     Route: 048
     Dates: start: 20160318
  13. TRAMADOL HCL [Concomitant]
     Active Substance: TRAMADOL HYDROCHLORIDE
  14. ORPHENADRINE [Concomitant]
     Active Substance: ORPHENADRINE
  15. LOSARTAN POTASSIUM. [Concomitant]
     Active Substance: LOSARTAN POTASSIUM
  16. GEMFIBROZIL. [Concomitant]
     Active Substance: GEMFIBROZIL
  17. TOPROL XL [Concomitant]
     Active Substance: METOPROLOL SUCCINATE

REACTIONS (1)
  - Constipation [Unknown]
